FAERS Safety Report 22212391 (Version 1)
Quarter: 2023Q2

REPORT INFORMATION
  Report Type: Spontaneous
  Country: US (occurrence: None)
  Receive Date: 20230411
  Receipt Date: 20230411
  Transmission Date: 20230721
  Serious: No
  Sender: FDA-Public Use
  Company Number: None

PATIENT
  Age: 64 Year
  Sex: Male
  Weight: 117.93 kg

DRUGS (1)
  1. ODOMZO [Suspect]
     Active Substance: SONIDEGIB
     Indication: Basal cell carcinoma
     Dosage: FREQUENCY : DAILY;?AT LEAST 1 HOUR BEFORE OR 2 HOURS AFTER A MEAL AS
     Route: 048
     Dates: start: 202301

REACTIONS (1)
  - Cancer surgery [None]
